FAERS Safety Report 13978073 (Version 6)
Quarter: 2017Q4

REPORT INFORMATION
  Report Type: Report from Study
  Country: US (occurrence: US)
  Receive Date: 20170915
  Receipt Date: 20171129
  Transmission Date: 20180321
  Serious: Yes (Hospitalization, Other)
  Sender: FDA-Public Use
  Company Number: US-ACTELION-A-NJ2017-159401

PATIENT
  Age: 76 Year
  Sex: Female
  Weight: 88.44 kg

DRUGS (21)
  1. UPTRAVI [Suspect]
     Active Substance: SELEXIPAG
     Dosage: 400 MCG, BID
     Route: 048
  2. NEURONTIN [Concomitant]
     Active Substance: GABAPENTIN
     Dosage: 300 MG, TID
  3. ZAROXOLYN [Concomitant]
     Active Substance: METOLAZONE
     Dosage: 5 MG, QD
  4. ALLOPURINOL. [Concomitant]
     Active Substance: ALLOPURINOL
     Dosage: 300 MG, QHS
  5. ALLOPURINOL. [Concomitant]
     Active Substance: ALLOPURINOL
     Dosage: 100 MG, QD
  6. FERGON [Concomitant]
     Active Substance: FERROUS GLUCONATE
     Dosage: 324 MG, TID
  7. TYVASO [Suspect]
     Active Substance: TREPROSTINIL
     Indication: PULMONARY ARTERIAL HYPERTENSION
     Dosage: 18-54
     Route: 055
     Dates: start: 20130225
  8. AMLODIPINE [Concomitant]
     Active Substance: AMLODIPINE BESYLATE
     Dosage: 5 MG, QD
  9. ASA [Concomitant]
     Active Substance: ASPIRIN
     Dosage: 81 MG, QD
  10. PRILOSEC [Concomitant]
     Active Substance: OMEPRAZOLE MAGNESIUM
     Dosage: 40 MG, BID
  11. LANTUS [Concomitant]
     Active Substance: INSULIN GLARGINE
     Dosage: 5-6 U QHS
  12. MEVACOR [Concomitant]
     Active Substance: LOVASTATIN
     Dosage: 20 MG, QHS
  13. LASIX [Concomitant]
     Active Substance: FUROSEMIDE
     Dosage: 80 MG, QD
  14. OPSUMIT [Suspect]
     Active Substance: MACITENTAN
     Indication: PULMONARY ARTERIAL HYPERTENSION
     Dosage: 10 MG, QD
     Route: 048
  15. UPTRAVI [Suspect]
     Active Substance: SELEXIPAG
     Dosage: 600 MCG, BID
     Route: 048
  16. SINEQUAN [Concomitant]
     Active Substance: DOXEPIN HYDROCHLORIDE
     Dosage: 50 MG, QHS
  17. VITAMIN D [Concomitant]
     Active Substance: CHOLECALCIFEROL
     Dosage: 5000 U, QOD
  18. COZAAR [Concomitant]
     Active Substance: LOSARTAN POTASSIUM
     Dosage: 100 MG, QD
  19. PHOSLO [Concomitant]
     Active Substance: CALCIUM ACETATE
     Dosage: 1334 UNK, TID
  20. UPTRAVI [Suspect]
     Active Substance: SELEXIPAG
     Indication: PULMONARY ARTERIAL HYPERTENSION
     Dosage: 800 MCG, BID
     Route: 048
  21. NEURONTIN [Concomitant]
     Active Substance: GABAPENTIN
     Dosage: 100 MG, QD

REACTIONS (20)
  - Acute kidney injury [Recovering/Resolving]
  - Blood creatinine increased [Recovering/Resolving]
  - Urine output decreased [Recovering/Resolving]
  - Portal hypertension [Unknown]
  - Face oedema [Unknown]
  - Feeling abnormal [Unknown]
  - Oedema peripheral [Unknown]
  - Nausea [Recovering/Resolving]
  - Ascites [Unknown]
  - Fluid retention [Unknown]
  - Arthralgia [Unknown]
  - Transfusion [Unknown]
  - Blood urea increased [Recovering/Resolving]
  - Haemoglobin decreased [Recovering/Resolving]
  - Feeding disorder [Recovering/Resolving]
  - Asthenia [Unknown]
  - Diarrhoea [Recovering/Resolving]
  - Dialysis [Unknown]
  - Headache [Unknown]
  - Abdominal discomfort [Unknown]

NARRATIVE: CASE EVENT DATE: 20170907
